FAERS Safety Report 9132892 (Version 3)
Quarter: 2013Q2

REPORT INFORMATION
  Report Type: Report from Study
  Country: CA (occurrence: CA)
  Receive Date: 20130301
  Receipt Date: 20130425
  Transmission Date: 20140414
  Serious: Yes (Other)
  Sender: FDA-Public Use
  Company Number: CA-ROCHE-1196845

PATIENT
  Sex: Female
  Weight: 61 kg

DRUGS (3)
  1. ACTEMRA [Suspect]
     Indication: JUVENILE IDIOPATHIC ARTHRITIS
     Route: 042
     Dates: start: 20101201, end: 20120820
  2. NAPROXEN [Concomitant]
  3. PREDNISONE [Concomitant]

REACTIONS (1)
  - Amnesia [Unknown]
